FAERS Safety Report 8289472-2 (Version None)
Quarter: 2012Q2

REPORT INFORMATION
  Report Type: 
  Country: None (occurrence: None)
  Receive Date: 20120417
  Receipt Date: 20120406
  Transmission Date: 20120825
  Serious: Yes (Disabling)
  Sender: FDA-Public Use
  Company Number: GR-AMGEN-GRCSP2012022083

PATIENT
  Age: 81 Year
  Sex: Female

DRUGS (2)
  1. PROLIA [Suspect]
     Indication: OSTEOPOROSIS
     Dosage: 60 MG, Q6MO
     Dates: start: 20120306
  2. DIOVAN HCT [Concomitant]
     Indication: HYPERTENSION

REACTIONS (6)
  - RESPIRATORY TRACT INFECTION [None]
  - ABDOMINAL DISCOMFORT [None]
  - COUGH [None]
  - SENSATION OF HEAVINESS [None]
  - BACK PAIN [None]
  - CHEST DISCOMFORT [None]
